FAERS Safety Report 4546196-2 (Version None)
Quarter: 2005Q1

REPORT INFORMATION
  Report Type: 
  Country: None (occurrence: None)
  Receive Date: 20050103
  Receipt Date: 20041217
  Transmission Date: 20050727
  Serious: No
  Sender: FDA-Public Use
  Company Number: 2004AP06416

PATIENT
  Age: 76 Year
  Sex: Male
  Weight: 68 kg

DRUGS (6)
  1. IRESSA [Suspect]
     Indication: NON-SMALL CELL LUNG CANCER
     Dosage: 250 MG DAILY PO
     Route: 048
     Dates: start: 20041210, end: 20041216
  2. LIPITOR [Concomitant]
  3. DISPRIN [Concomitant]
  4. PURICOS [Concomitant]
  5. COVERSYL [Concomitant]
  6. ATENOLOL [Concomitant]

REACTIONS (3)
  - CONDITION AGGRAVATED [None]
  - COUGH [None]
  - VOMITING [None]
